FAERS Safety Report 4440779-6 (Version None)
Quarter: 2004Q3

REPORT INFORMATION
  Report Type: 
  Country: None (occurrence: None)
  Receive Date: 20040826
  Receipt Date: 20040812
  Transmission Date: 20050211
  Serious: Yes (Other)
  Sender: FDA-Public Use
  Company Number: 2004-02667

PATIENT
  Age: 66 Year
  Sex: Male

DRUGS (1)
  1. IMMUCYST (BCG - IT (CONNAUGHT)), AVENTIS PASTEUR LTD.,  LOT NOT REP, I [Suspect]
     Indication: BLADDER CANCER
     Dosage: IN., BLADDER
     Dates: start: 20040809

REACTIONS (2)
  - FEELING ABNORMAL [None]
  - PYREXIA [None]
